FAERS Safety Report 8263036-9 (Version None)
Quarter: 2012Q2

REPORT INFORMATION
  Report Type: 
  Country: None (occurrence: None)
  Receive Date: 20120405
  Receipt Date: 20120330
  Transmission Date: 20120825
  Serious: Yes (Hospitalization)
  Sender: FDA-Public Use
  Company Number: JP-EISAI INC-E7389-02259-CLI-JP

PATIENT
  Age: 33 Year
  Sex: Female
  Weight: 43 kg

DRUGS (7)
  1. RABEPRAZOLE SODIUM [Concomitant]
     Route: 065
     Dates: start: 20111101, end: 20111108
  2. METHYCOBAL [Concomitant]
     Route: 065
     Dates: start: 20111101, end: 20111108
  3. PREDNISOLONE [Concomitant]
     Route: 065
     Dates: start: 20111101, end: 20111108
  4. HALAVEN [Suspect]
     Indication: BREAST CANCER RECURRENT
     Route: 041
     Dates: start: 20110912, end: 20111030
  5. ADENOSINE [Concomitant]
     Route: 065
     Dates: start: 20111101, end: 20111108
  6. ZOMETA [Concomitant]
     Route: 065
     Dates: start: 20080101, end: 20111114
  7. CYCLOPHOSPHAMIDE [Suspect]
     Route: 065
     Dates: end: 20111114

REACTIONS (1)
  - CYSTITIS HAEMORRHAGIC [None]
